APPROVED DRUG PRODUCT: DEPO-SUBQ PROVERA 104
Active Ingredient: MEDROXYPROGESTERONE ACETATE
Strength: 104MG/0.65ML
Dosage Form/Route: INJECTABLE;SUBCUTANEOUS
Application: N021583 | Product #001
Applicant: PFIZER INC
Approved: Dec 17, 2004 | RLD: Yes | RS: Yes | Type: RX